FAERS Safety Report 14840181 (Version 3)
Quarter: 2018Q2

REPORT INFORMATION
  Report Type: Spontaneous
  Country: US (occurrence: US)
  Receive Date: 20180503
  Receipt Date: 20180616
  Transmission Date: 20180711
  Serious: Yes (Other)
  Sender: FDA-Public Use
  Company Number: US-009507513-1805USA000974

PATIENT
  Age: 61 Year
  Sex: Male
  Weight: 100.68 kg

DRUGS (2)
  1. ZETIA [Suspect]
     Active Substance: EZETIMIBE
     Indication: MALAISE
     Dosage: 10 MG, QD
     Route: 048
     Dates: start: 20180216, end: 20180222
  2. ZETIA [Suspect]
     Active Substance: EZETIMIBE
     Indication: DIARRHOEA

REACTIONS (3)
  - Diarrhoea [Recovering/Resolving]
  - Malaise [Recovering/Resolving]
  - Product use in unapproved indication [Unknown]

NARRATIVE: CASE EVENT DATE: 20180216
